FAERS Safety Report 7765502-9 (Version None)
Quarter: 2011Q3

REPORT INFORMATION
  Report Type: 
  Country: None (occurrence: None)
  Receive Date: 20110906
  Receipt Date: 20110516
  Transmission Date: 20111222
  Serious: No
  Sender: FDA-Public Use
  Company Number: 201103069

PATIENT
  Age: 55 Year
  Sex: Male

DRUGS (3)
  1. PREVASTATIN (PRAVASTATIN) [Concomitant]
  2. XIAFLEX [Suspect]
     Indication: DUPUYTREN'S CONTRACTURE
     Dosage: 0.58 MG, 1 IN 1 D, INTRALESIONAL
     Route: 026
     Dates: start: 20101228, end: 20101228
  3. XIAFLEX [Suspect]
     Indication: DUPUYTREN'S CONTRACTURE
     Dosage: 0.58 MG, 1 IN 1 D, INTRALESIONAL
     Route: 026
     Dates: start: 20110301, end: 20110301

REACTIONS (4)
  - LYMPHADENOPATHY [None]
  - LACERATION [None]
  - LYMPHADENITIS [None]
  - INJURY [None]
